FAERS Safety Report 20016743 (Version 1)
Quarter: 2021Q4

REPORT INFORMATION
  Report Type: Spontaneous
  Country: US (occurrence: None)
  Receive Date: 20211104
  Receipt Date: 20211104
  Transmission Date: 20220304
  Serious: No
  Sender: FDA-Public Use
  Company Number: None

PATIENT
  Age: 70 Year
  Sex: Female

DRUGS (1)
  1. COPAXONE [Suspect]
     Active Substance: GLATIRAMER ACETATE
     Indication: Multiple sclerosis
     Dosage: FREQUENCY : 3 TIMES A WEEK;?OTHER ROUTE : SC INJECTION;?
     Route: 050
     Dates: start: 202007

REACTIONS (2)
  - Pain in extremity [None]
  - Eating disorder [None]

NARRATIVE: CASE EVENT DATE: 20211010
